FAERS Safety Report 8558819-1 (Version None)
Quarter: 2012Q3

REPORT INFORMATION
  Report Type: 
  Country: None (occurrence: None)
  Receive Date: 20120801
  Receipt Date: 20120725
  Transmission Date: 20120928
  Serious: Yes (Hospitalization)
  Sender: FDA-Public Use
  Company Number: US-BIOMARINP-001765

PATIENT
  Sex: Female
  Weight: 103 kg

DRUGS (16)
  1. MELATONIN [Concomitant]
  2. PRILOSEC [Concomitant]
  3. KUVAN [Suspect]
     Indication: PHENYLKETONURIA
     Route: 048
     Dates: start: 20091007, end: 20100301
  4. CLINDAMYCIN [Concomitant]
  5. ZOFRAN [Concomitant]
  6. TRAZODONE HYDROCHLORIDE [Concomitant]
  7. SODIUM CHLORIDE [Concomitant]
  8. BLOOD TRANSFUSION [Concomitant]
  9. IBUPROFEN [Concomitant]
  10. VICODIN [Concomitant]
  11. AMOXICILLIN [Concomitant]
  12. ZITHROMAX [Concomitant]
  13. PEPCID [Concomitant]
  14. AMBIEN [Concomitant]
  15. REGLAN [Concomitant]
  16. NEXIUM [Concomitant]

REACTIONS (1)
  - PERFORATED ULCER [None]
